FAERS Safety Report 11928986 (Version 2)
Quarter: 2016Q1

REPORT INFORMATION
  Report Type: Spontaneous
  Country: JP (occurrence: JP)
  Receive Date: 20160120
  Receipt Date: 20160209
  Transmission Date: 20160526
  Serious: Yes (Hospitalization)
  Sender: FDA-Public Use
  Company Number: JP-009507513-1601JPN006482

PATIENT
  Age: 77 Year
  Sex: Female

DRUGS (5)
  1. AVAPRO [Concomitant]
     Active Substance: IRBESARTAN
     Dosage: 100 DOSAGE FORMS, QD
     Route: 048
     Dates: start: 20090820
  2. SOVALDI [Suspect]
     Active Substance: SOFOSBUVIR
     Indication: CHRONIC HEPATITIS
     Dosage: 400 DOSAGE FORMS, QD
     Route: 048
     Dates: start: 20151017, end: 20151128
  3. LOCHOL (FLUVASTATIN SODIUM) [Concomitant]
     Active Substance: FLUVASTATIN SODIUM
     Dosage: 30 DOSAGE FORMS, QD
     Route: 048
     Dates: start: 20081011
  4. REBETOL [Suspect]
     Active Substance: RIBAVIRIN
     Indication: CHRONIC HEPATITIS
     Dosage: 600 DOSAGE FORMS, QD
     Route: 048
     Dates: start: 20151017, end: 20151128
  5. AMLODIN (AMLODIPINE BESYLATE) [Concomitant]
     Active Substance: AMLODIPINE BESYLATE
     Dosage: 2.5 DOSAGE FORMS, QD
     Route: 048
     Dates: start: 20091031

REACTIONS (2)
  - Cardiac failure [Recovering/Resolving]
  - Atrial fibrillation [Recovering/Resolving]

NARRATIVE: CASE EVENT DATE: 20151128
